FAERS Safety Report 8186263-8 (Version None)
Quarter: 2012Q1

REPORT INFORMATION
  Report Type: 
  Country: None (occurrence: None)
  Receive Date: 20120306
  Receipt Date: 20120221
  Transmission Date: 20120608
  Serious: Yes (Other)
  Sender: FDA-Public Use
  Company Number: US-RB-035231-12

PATIENT
  Age: 85 Year
  Sex: Male

DRUGS (1)
  1. MUCINEX DM [Suspect]
     Indication: PRODUCT USED FOR UNKNOWN INDICATION
     Dosage: 2.16.12 UNTIL 2.20.12 2 TABLETS EVERY 12 HOURS.
     Route: 048
     Dates: start: 20120217

REACTIONS (4)
  - DIZZINESS [None]
  - VISION BLURRED [None]
  - HYPOTENSION [None]
  - LOSS OF CONSCIOUSNESS [None]
